FAERS Safety Report 17528516 (Version 11)
Quarter: 2021Q1

REPORT INFORMATION
  Report Type: Spontaneous
  Country: ES (occurrence: ES)
  Receive Date: 20200312
  Receipt Date: 20210330
  Transmission Date: 20210419
  Serious: Yes (Other)
  Sender: FDA-Public Use
  Company Number: ES-AUROBINDO-AUR-APL-2020-012106

PATIENT
  Age: 64 Year
  Sex: Female

DRUGS (6)
  1. ABEMACICLIB [Suspect]
     Active Substance: ABEMACICLIB
     Dosage: 50 MILLIGRAM
     Route: 048
     Dates: start: 20210228
  2. ABEMACICLIB [Suspect]
     Active Substance: ABEMACICLIB
     Indication: BREAST CANCER METASTATIC
     Dosage: 150 MILLIGRAM
     Route: 048
     Dates: start: 20190701, end: 20190730
  3. ABEMACICLIB [Suspect]
     Active Substance: ABEMACICLIB
     Dosage: 100 MILLIGRAM
     Route: 048
     Dates: start: 20190731
  4. ABEMACICLIB [Suspect]
     Active Substance: ABEMACICLIB
     Dosage: 50 MILLIGRAM (THREE?WEEK TREATMENT AND ONE?WEEK REST SCHEDULE )
     Route: 048
     Dates: start: 20200309
  5. ABEMACICLIB [Suspect]
     Active Substance: ABEMACICLIB
     Dosage: 50 MILLIGRAM THREE?WEEK TREATMENT AND ONE?WEEK REST SCHEDULE
     Route: 048
     Dates: start: 20200309
  6. LETROZOLE. [Suspect]
     Active Substance: LETROZOLE
     Indication: PRODUCT USED FOR UNKNOWN INDICATION
     Dosage: UNK
     Route: 065

REACTIONS (30)
  - Dry skin [Recovering/Resolving]
  - Rash [Recovered/Resolved]
  - Dry eye [Recovering/Resolving]
  - Thrombocytopenia [Recovered/Resolved]
  - Constipation [Recovering/Resolving]
  - Feeling cold [Recovered/Resolved]
  - Gastrooesophageal reflux disease [Recovering/Resolving]
  - Immunodeficiency [Recovering/Resolving]
  - Neutrophil count decreased [Recovered/Resolved]
  - Alopecia [Recovering/Resolving]
  - Anaemia [Recovered/Resolved]
  - Blood cholesterol increased [Recovering/Resolving]
  - Rectal tenesmus [Recovered/Resolved]
  - Eye swelling [Recovering/Resolving]
  - Erythema [Recovering/Resolving]
  - Arthralgia [Recovering/Resolving]
  - Hyperhidrosis [Recovered/Resolved]
  - Diarrhoea [Recovered/Resolved]
  - Hot flush [Recovering/Resolving]
  - Weight decreased [Recovered/Resolved]
  - Rhinorrhoea [Recovering/Resolving]
  - Skin exfoliation [Recovering/Resolving]
  - Vomiting [Recovered/Resolved]
  - Tumour marker increased [Recovering/Resolving]
  - Hair texture abnormal [Recovering/Resolving]
  - Lacrimation increased [Recovering/Resolving]
  - Decreased appetite [Recovering/Resolving]
  - Dizziness [Recovered/Resolved]
  - Fatigue [Recovering/Resolving]
  - Hair growth abnormal [Recovering/Resolving]

NARRATIVE: CASE EVENT DATE: 20190703
